FAERS Safety Report 7951739-2 (Version None)
Quarter: 2011Q4

REPORT INFORMATION
  Report Type: 
  Country: None (occurrence: None)
  Receive Date: 20111201
  Receipt Date: 20111128
  Transmission Date: 20120403
  Serious: Yes (Other)
  Sender: FDA-Public Use
  Company Number: US-JNJFOC-20110500823

PATIENT
  Sex: Female

DRUGS (13)
  1. DURAGESIC-100 [Suspect]
     Indication: FIBROMYALGIA
     Route: 062
  2. LAMICTAL [Concomitant]
     Indication: PAIN
     Route: 048
  3. PROZAC [Concomitant]
     Indication: PAIN
     Route: 048
  4. ATENOLOL [Concomitant]
     Indication: CARDIAC DISORDER
     Route: 048
  5. FENTANYL-100 [Suspect]
     Route: 062
     Dates: start: 20090201
  6. PROVERA [Concomitant]
     Indication: HORMONE REPLACEMENT THERAPY
     Route: 048
  7. LIPITOR [Concomitant]
     Indication: BLOOD CHOLESTEROL
     Route: 048
  8. OXYCODONE HCL [Concomitant]
     Indication: BREAKTHROUGH PAIN
     Route: 048
  9. FENTANYL-100 [Suspect]
     Indication: FIBROMYALGIA
     Route: 062
     Dates: start: 20110101
  10. TYLOX [Concomitant]
     Indication: BREAKTHROUGH PAIN
     Route: 048
  11. DURAGESIC-100 [Suspect]
     Route: 062
     Dates: start: 19990101, end: 20090201
  12. DURAGESIC-100 [Suspect]
     Route: 062
     Dates: start: 20090101, end: 20110101
  13. PREMARIN [Concomitant]
     Indication: HORMONE REPLACEMENT THERAPY
     Route: 048

REACTIONS (5)
  - GASTRIC BYPASS [None]
  - DRUG DOSE OMISSION [None]
  - THROMBOSIS [None]
  - WEIGHT DECREASED [None]
  - CARCINOID TUMOUR OF THE APPENDIX [None]
